FAERS Safety Report 16809573 (Version 1)
Quarter: 2019Q3

REPORT INFORMATION
  Report Type: Report from Study
  Country: CN (occurrence: CN)
  Receive Date: 20190916
  Receipt Date: 20190916
  Transmission Date: 20191005
  Serious: Yes (Hospitalization, Other)
  Sender: FDA-Public Use
  Company Number: CN-AMGEN-CHNCT2019149338

PATIENT
  Age: 55 Year
  Sex: Male

DRUGS (9)
  1. PREDNISONE. [Concomitant]
     Active Substance: PREDNISONE
     Indication: SYSTEMIC LUPUS ERYTHEMATOSUS
     Dosage: 5 MILLIGRAM, QD
     Route: 048
     Dates: start: 1993
  2. SEVELAMER [Concomitant]
     Active Substance: SEVELAMER
     Indication: HYPERPHOSPHATAEMIA
     Dosage: 0.8 GRAM, BID
     Route: 048
     Dates: start: 201807
  3. MITIGLINIDE [Concomitant]
     Active Substance: MITIGLINIDE
     Indication: TYPE 2 DIABETES MELLITUS
  4. PREDNISONE. [Concomitant]
     Active Substance: PREDNISONE
     Indication: BEHCET^S SYNDROME
     Dosage: 1 DOSAGE FORM
     Route: 048
     Dates: start: 201906
  5. CALCITRIOL. [Concomitant]
     Active Substance: CALCITRIOL
     Indication: HYPERPARATHYROIDISM SECONDARY
     Dosage: 6 CAPSULES , QD
     Route: 048
     Dates: start: 20190421, end: 201906
  6. FOLIC ACID ALMUS [Concomitant]
     Active Substance: FOLIC ACID
     Indication: NEPHROGENIC ANAEMIA
     Dosage: 5 MILLIGRAM, QD
     Route: 048
     Dates: start: 200503
  7. EPO + SOY ISOFLAVONES [Concomitant]
     Indication: NEPHROGENIC ANAEMIA
     Dosage: 6000 UNIT, QWK
     Route: 042
     Dates: start: 201806
  8. CINACALCET HCL [Suspect]
     Active Substance: CINACALCET HYDROCHLORIDE
     Indication: HYPERPARATHYROIDISM SECONDARY
     Dosage: 25 MILLIGRAM
     Route: 065
     Dates: start: 20180907, end: 20190419
  9. METOPROLOL. [Concomitant]
     Active Substance: METOPROLOL
     Indication: HYPERTENSION
     Dosage: 12.5 MILLIGRAM, QD
     Route: 048
     Dates: start: 200503

REACTIONS (1)
  - Parathyroidectomy [Recovered/Resolved]
